FAERS Safety Report 23686156 (Version 1)
Quarter: 2024Q1

REPORT INFORMATION
  Report Type: Spontaneous
  Country: DE (occurrence: DE)
  Receive Date: 20240329
  Receipt Date: 20240329
  Transmission Date: 20240409
  Serious: Yes (Other)
  Sender: FDA-Public Use
  Company Number: DE-NOVITIUMPHARMA-2024DENVP00357

PATIENT
  Age: 4 Year
  Sex: Female

DRUGS (1)
  1. PREDNISONE [Suspect]
     Active Substance: PREDNISONE
     Indication: Rash maculo-papular
     Dosage: HIGH DOSE ABOVE 0.8MG/KG

REACTIONS (1)
  - Drug dependence [Unknown]
